FAERS Safety Report 17803511 (Version 1)
Quarter: 2020Q2

REPORT INFORMATION
  Report Type: Spontaneous
  Country: SE (occurrence: SE)
  Receive Date: 20200519
  Receipt Date: 20200519
  Transmission Date: 20200714
  Serious: Yes (Other)
  Sender: FDA-Public Use
  Company Number: NVSC2020SE136029

PATIENT
  Age: 78 Year
  Sex: Male

DRUGS (1)
  1. METOPROLOL. [Suspect]
     Active Substance: METOPROLOL
     Indication: HEART RATE IRREGULAR
     Dosage: 100 MG
     Route: 065
     Dates: start: 20190826

REACTIONS (6)
  - Abdominal distension [Unknown]
  - Product use in unapproved indication [Unknown]
  - Abnormal faeces [Unknown]
  - Cardiac flutter [Unknown]
  - Frequent bowel movements [Unknown]
  - Abdominal pain [Unknown]

NARRATIVE: CASE EVENT DATE: 20190826
